FAERS Safety Report 8031545 (Version 7)
Quarter: 2013Q1

REPORT INFORMATION
  Report Type: Spontaneous
  Country: US (occurrence: US)
  Receive Date: 20110712
  Receipt Date: 20130109
  Transmission Date: 20140127
  Serious: Yes (Hospitalization, Other)
  Sender: FDA-Public Use
  Company Number: US-ASTRAZENECA-2011SE40833

PATIENT
  Age: 57 Year
  Sex: Female
  Weight: 60.8 kg

DRUGS (29)
  1. SEROQUEL [Suspect]
     Indication: HALLUCINATION
     Route: 048
  2. SEROQUEL [Suspect]
     Indication: SLEEP DISORDER
     Route: 048
  3. SEROQUEL [Suspect]
     Indication: NIGHTMARE
     Route: 048
  4. SEROQUEL [Suspect]
     Indication: BIPOLAR DISORDER
     Route: 048
  5. SEROQUEL [Suspect]
     Indication: DEPRESSION
     Route: 048
  6. SEROQUEL [Suspect]
     Indication: SCHIZOPHRENIA
     Route: 048
  7. SEROQUEL [Suspect]
     Indication: HALLUCINATION
     Route: 048
  8. SEROQUEL [Suspect]
     Indication: SLEEP DISORDER
     Route: 048
  9. SEROQUEL [Suspect]
     Indication: NIGHTMARE
     Route: 048
  10. SEROQUEL [Suspect]
     Indication: BIPOLAR DISORDER
     Route: 048
  11. SEROQUEL [Suspect]
     Indication: DEPRESSION
     Route: 048
  12. SEROQUEL [Suspect]
     Indication: SCHIZOPHRENIA
     Route: 048
  13. SEROQUEL [Suspect]
     Indication: HALLUCINATION
     Route: 048
  14. SEROQUEL [Suspect]
     Indication: SLEEP DISORDER
     Route: 048
  15. SEROQUEL [Suspect]
     Indication: NIGHTMARE
     Route: 048
  16. SEROQUEL [Suspect]
     Indication: BIPOLAR DISORDER
     Route: 048
  17. SEROQUEL [Suspect]
     Indication: DEPRESSION
     Route: 048
  18. SEROQUEL [Suspect]
     Indication: SCHIZOPHRENIA
     Route: 048
  19. BACLOFEN [Concomitant]
  20. VALIUM [Concomitant]
  21. TRICOR [Concomitant]
  22. LASIX [Concomitant]
     Dosage: PRN
  23. BYSTOLIC [Concomitant]
  24. TOPAMAX [Concomitant]
  25. LIPITOR [Concomitant]
  26. CYMBALTA [Concomitant]
  27. RITALIN [Concomitant]
  28. RESTASIS [Concomitant]
  29. LAMISIL [Concomitant]

REACTIONS (16)
  - Suicidal ideation [Unknown]
  - Fall [Unknown]
  - Head injury [Unknown]
  - Thermal burn [Unknown]
  - Head discomfort [Unknown]
  - Amnesia [Unknown]
  - Hallucination [Unknown]
  - Insomnia [Unknown]
  - Schizophrenia [Unknown]
  - Pain [Unknown]
  - Nightmare [Unknown]
  - Weight increased [Unknown]
  - Abnormal dreams [Unknown]
  - Intentional drug misuse [Unknown]
  - Drug dose omission [Unknown]
  - Drug ineffective [Unknown]
